FAERS Safety Report 7681235-1 (Version None)
Quarter: 2011Q3

REPORT INFORMATION
  Report Type: 
  Country: None (occurrence: None)
  Receive Date: 20110810
  Receipt Date: 20110726
  Transmission Date: 20111222
  Serious: Yes (Hospitalization)
  Sender: FDA-Public Use
  Company Number: 1000022290

PATIENT
  Age: 88 Year
  Sex: Female

DRUGS (6)
  1. ESCITALOPRAM OXALATE [Suspect]
     Dosage: 10 MG (10 MG,1 IN 1 D), ORAL
     Route: 048
     Dates: end: 20100208
  2. TENORDATE(NIF-TEN) [Concomitant]
  3. ASPIRIN [Suspect]
     Dosage: 75 MG (75 MG,1 IN 1 D), ORAL
     Route: 048
     Dates: end: 20100208
  4. DIFFU K(POTASSIUM CHLORIDE) [Concomitant]
  5. CANDESARTAN CILEXETIL AND HYDROCHLOROTHIAZIDE [Suspect]
     Dosage: 8 MG (8 MG,1 IN 1 D)
     Dates: end: 20100208
  6. OXAZEPAM [Concomitant]

REACTIONS (8)
  - ABNORMAL BEHAVIOUR [None]
  - LUNG DISORDER [None]
  - HYPERCOAGULATION [None]
  - HYPERTENSION [None]
  - HEADACHE [None]
  - HEMIPARESIS [None]
  - HYPONATRAEMIA [None]
  - CONFUSIONAL STATE [None]
